FAERS Safety Report 8368886-6 (Version None)
Quarter: 2012Q2

REPORT INFORMATION
  Report Type: 
  Country: None (occurrence: None)
  Receive Date: 20120516
  Receipt Date: 20120427
  Transmission Date: 20120825
  Serious: Yes (Hospitalization)
  Sender: FDA-Public Use
  Company Number: 2012050075

PATIENT
  Age: 55 Year
  Sex: Female

DRUGS (5)
  1. TELAVIC (TELAPREVIR) [Suspect]
     Indication: HEPATITIS C
     Dosage: 2250 MG, ORAL
     Route: 048
     Dates: start: 20120131, end: 20120327
  2. TORSEMIDE [Suspect]
     Indication: FACE OEDEMA
     Dosage: 4 MG (4 MG, 1 IN 1 D), ORAL
     Route: 048
     Dates: start: 20120326, end: 20120405
  3. REBETOL [Suspect]
     Indication: HEPATITIS C
     Dosage: 1000 MG, ORAL
     Route: 048
     Dates: start: 20120131, end: 20120408
  4. PEG-INTRON [Suspect]
     Indication: HEPATITIS C
     Dosage: SEE IMAGE
     Route: 042
     Dates: start: 20120131, end: 20120402
  5. PEG-INTRON [Suspect]
     Indication: HEPATITIS C
     Dosage: SEE IMAGE
     Route: 042
     Dates: start: 20120409

REACTIONS (10)
  - WHITE BLOOD CELL COUNT DECREASED [None]
  - HYPOTENSION [None]
  - FACE OEDEMA [None]
  - HAEMOGLOBIN DECREASED [None]
  - PRURITUS [None]
  - VOMITING [None]
  - PLATELET COUNT DECREASED [None]
  - DIZZINESS [None]
  - HYPOKALAEMIA [None]
  - NAUSEA [None]
